FAERS Safety Report 18247377 (Version 1)
Quarter: 2020Q3

REPORT INFORMATION
  Report Type: Spontaneous
  Country: NL (occurrence: FR)
  Receive Date: 20200909
  Receipt Date: 20200909
  Transmission Date: 20201103
  Serious: Yes (Other)
  Sender: FDA-Public Use
  Company Number: FR-FRESENIUS KABI-FK202009090

PATIENT
  Age: 34 Year
  Sex: Male
  Weight: 73 kg

DRUGS (11)
  1. CARMUSTINE. [Suspect]
     Active Substance: CARMUSTINE
     Indication: TRANSPLANT
     Route: 041
     Dates: start: 20171229
  2. CYCLOPHOSPHAMIDE MONOHYDRATE [Suspect]
     Active Substance: CYCLOPHOSPHAMIDE
     Indication: CHEMOTHERAPY
     Route: 041
     Dates: start: 201404, end: 201408
  3. DOXORUBICIN [Suspect]
     Active Substance: DOXORUBICIN
     Indication: CHEMOTHERAPY
     Route: 041
     Dates: start: 201404, end: 201408
  4. ETOPOSIDE. [Suspect]
     Active Substance: ETOPOSIDE
     Indication: TRANSPLANT
     Route: 041
     Dates: start: 20171229
  5. CYTARABINE. [Suspect]
     Active Substance: CYTARABINE
     Indication: CHEMOTHERAPY
     Dosage: ON 3 CYCLE
     Route: 041
     Dates: start: 201710, end: 201711
  6. MELPHALAN. [Suspect]
     Active Substance: MELPHALAN
     Indication: TRANSPLANT
     Route: 042
     Dates: start: 20171229
  7. IBRUTINIB [Suspect]
     Active Substance: IBRUTINIB
     Indication: CHEMOTHERAPY
     Dosage: 560MG PER DAY DURING 13 DAYS AT EACH CYCLE (3 CYCLES)
     Route: 048
     Dates: start: 201710, end: 201711
  8. DEXAMETHASONE. [Concomitant]
     Active Substance: DEXAMETHASONE
     Indication: CHEMOTHERAPY
     Dosage: 40MG DURING 4 DAYS ON 3 CYCLES
     Route: 042
     Dates: start: 201710, end: 201711
  9. OXALIPLATIN (MANUFACTURER UNKNOWN) [Suspect]
     Active Substance: OXALIPLATIN
     Indication: CHEMOTHERAPY
     Route: 042
     Dates: start: 201710, end: 201711
  10. VINCRISTINE SULFATE. [Suspect]
     Active Substance: VINCRISTINE SULFATE
     Indication: CHEMOTHERAPY
     Route: 041
     Dates: start: 201404, end: 201408
  11. RITUXIMAB. [Suspect]
     Active Substance: RITUXIMAB
     Indication: CHEMOTHERAPY
     Route: 042
     Dates: start: 201410, end: 201606

REACTIONS (1)
  - Ventricular dysfunction [Not Recovered/Not Resolved]

NARRATIVE: CASE EVENT DATE: 201809
